FAERS Safety Report 9913579 (Version 4)
Quarter: 2014Q3

REPORT INFORMATION
  Report Type: Spontaneous
  Country: US (occurrence: IT)
  Receive Date: 20140220
  Receipt Date: 20140910
  Transmission Date: 20150326
  Serious: Yes (Hospitalization, Other)
  Sender: FDA-Public Use
  Company Number: IT-FRI-1000054346

PATIENT
  Age: 70 Year
  Sex: Female

DRUGS (8)
  1. VALPROATE SODIUM. [Concomitant]
     Active Substance: VALPROATE SODIUM
  2. ASENAPINE [Suspect]
     Active Substance: ASENAPINE
     Indication: BIPOLAR DISORDER
     Dosage: 5 MG
     Route: 060
  3. DEPAKIN [Suspect]
     Active Substance: VALPROATE SODIUM
     Indication: BIPOLAR DISORDER
     Dosage: 1000 MG
     Route: 048
     Dates: end: 20140210
  4. ASENAPINE [Suspect]
     Active Substance: ASENAPINE
     Dosage: 10 MG
     Route: 060
  5. DEPAKIN [Suspect]
     Active Substance: VALPROATE SODIUM
     Route: 048
  6. SIMVASTATIN. [Concomitant]
     Active Substance: SIMVASTATIN
  7. ASENAPINE [Suspect]
     Active Substance: ASENAPINE
     Dosage: 20 MG
     Route: 060
  8. FLURAZEPAM [Suspect]
     Active Substance: FLURAZEPAM\FLURAZEPAM HYDROCHLORIDE
     Dosage: TOTAL DOSE 270 MG, 9 TABLETS
     Route: 048

REACTIONS (8)
  - Hypernatraemia [Unknown]
  - Underdose [Recovered/Resolved]
  - General physical health deterioration [Unknown]
  - Coma [Recovered/Resolved]
  - Hypotension [Unknown]
  - Nephrogenic diabetes insipidus [Not Recovered/Not Resolved]
  - Depression [Recovered/Resolved]
  - Inappropriate schedule of drug administration [Recovered/Resolved]

NARRATIVE: CASE EVENT DATE: 20140210
